FAERS Safety Report 9880456 (Version 1)
Quarter: 2014Q1

REPORT INFORMATION
  Report Type: Spontaneous
  Country: US (occurrence: None)
  Receive Date: 20140206
  Receipt Date: 20140206
  Transmission Date: 20141002
  Serious: Yes (Disabling)
  Sender: FDA-Public Use
  Company Number: None

PATIENT
  Age: 59 Year
  Sex: Female
  Weight: 54.43 kg

DRUGS (1)
  1. CIPROFLOXACIN HCL [Suspect]
     Indication: URINARY TRACT INFECTION
     Dosage: 5 TIMES?9/12;1/13;7/13;9/13;10/13?250MG ?2 TABLETS?2/DAY?ORAL
     Route: 048
     Dates: start: 20120912

REACTIONS (1)
  - Tendonitis [None]
